FAERS Safety Report 4559517-1 (Version None)
Quarter: 2005Q1

REPORT INFORMATION
  Report Type: 
  Country: None (occurrence: None)
  Receive Date: 20050119
  Receipt Date: 20050110
  Transmission Date: 20050727
  Serious: Yes (Other)
  Sender: FDA-Public Use
  Company Number: 2005004226

PATIENT
  Age: 68 Year
  Sex: Male
  Weight: 112.0385 kg

DRUGS (5)
  1. ATORVASTATIN (ATORVASTATIN) [Suspect]
     Indication: BLOOD CHOLESTEROL INCREASED
     Dosage: 20 MG (20 MG, 1 IN 1 D) , ORAL
     Route: 048
     Dates: start: 20010901
  2. CLOPIDOGREL BISULFATE [Suspect]
     Indication: PROPHYLAXIS
     Dosage: 75 MG (75 MG , 1 IN 1 D) ORAL
     Route: 048
     Dates: start: 20011101, end: 20050104
  3. ASPIRIN [Suspect]
     Indication: ILL-DEFINED DISORDER
     Dosage: 325 MG (325 MG , 1 IN 1 D) ORAL
     Route: 048
     Dates: start: 19930901, end: 20050104
  4. METOPROLOL TARTRATE [Concomitant]
  5. OMEPRAZOLE [Concomitant]

REACTIONS (1)
  - DEEP VEIN THROMBOSIS [None]
